FAERS Safety Report 6807111-1 (Version None)
Quarter: 2010Q2

REPORT INFORMATION
  Report Type: 
  Country: None (occurrence: None)
  Receive Date: 20100629
  Receipt Date: 20080723
  Transmission Date: 20101027
  Serious: No
  Sender: FDA-Public Use
  Company Number: US-PFIZER INC-2008061240

PATIENT
  Sex: Female

DRUGS (7)
  1. XANAX [Suspect]
     Indication: INSOMNIA
     Dates: start: 20080624, end: 20080721
  2. XANAX [Suspect]
     Indication: GRIEF REACTION
  3. CHANTIX [Suspect]
     Indication: SMOKING CESSATION THERAPY
     Dates: start: 20080716, end: 20080721
  4. LORATADINE [Concomitant]
  5. CITALOPRAM [Concomitant]
  6. AUGMENTIN '125' [Concomitant]
  7. LORATADINE [Concomitant]
     Indication: PAIN

REACTIONS (4)
  - CRYING [None]
  - DRUG INEFFECTIVE [None]
  - INSOMNIA [None]
  - MALAISE [None]
